FAERS Safety Report 7531358-2 (Version None)
Quarter: 2011Q2

REPORT INFORMATION
  Report Type: 
  Country: None (occurrence: None)
  Receive Date: 20110606
  Receipt Date: 20110606
  Transmission Date: 20111010
  Serious: No
  Sender: FDA-Public Use
  Company Number: None

PATIENT
  Age: 76 Year
  Weight: 63.5036 kg

DRUGS (3)
  1. PREDNISONE TAB [Suspect]
  2. ADVAIR DISKUS 100/50 [Suspect]
  3. SYMBICORT [Suspect]

REACTIONS (11)
  - DYSPNOEA [None]
  - GLAUCOMA [None]
  - WEIGHT DECREASED [None]
  - TREMOR [None]
  - ORAL INFECTION [None]
  - ADRENAL DISORDER [None]
  - OSTEOPOROSIS [None]
  - ASTHENIA [None]
  - FEELING HOT [None]
  - TOOTHACHE [None]
  - INSOMNIA [None]
